FAERS Safety Report 7005693-0 (Version None)
Quarter: 2010Q3

REPORT INFORMATION
  Report Type: 
  Country: None (occurrence: None)
  Receive Date: 20100921
  Receipt Date: 20100916
  Transmission Date: 20110219
  Serious: Yes (Hospitalization, Other)
  Sender: FDA-Public Use
  Company Number: US-ABBOTT-10P-163-0656143-00

PATIENT
  Age: 30 Year
  Sex: Female

DRUGS (5)
  1. HUMIRA [Suspect]
     Indication: CROHN'S DISEASE
     Route: 058
     Dates: start: 20070101, end: 20080101
  2. HUMIRA [Suspect]
     Dosage: 1 YEAR IN 2007
     Route: 058
     Dates: start: 20091201, end: 20091201
  3. HUMIRA [Suspect]
     Route: 058
     Dates: start: 20100707
  4. PENTASA [Concomitant]
     Indication: CROHN'S DISEASE
     Route: 048
  5. MERCAPTOPURINE [Concomitant]
     Indication: CROHN'S DISEASE

REACTIONS (8)
  - COLONIC OBSTRUCTION [None]
  - CONSTIPATION [None]
  - INJECTION SITE PAIN [None]
  - MALAISE [None]
  - PYREXIA [None]
  - RECTAL ABSCESS [None]
  - VOMITING [None]
  - WEIGHT DECREASED [None]
